FAERS Safety Report 5351691-2 (Version None)
Quarter: 2007Q2

REPORT INFORMATION
  Report Type: 
  Country: None (occurrence: None)
  Receive Date: 20070518
  Receipt Date: 20070209
  Transmission Date: 20071010
  Serious: No
  Sender: FDA-Public Use
  Company Number: TPA2007A00369

PATIENT
  Age: 29 Year
  Sex: Female
  Weight: 117.9352 kg

DRUGS (5)
  1. ROZEREM [Suspect]
     Indication: INSOMNIA
     Dosage: 8 MG, HS, PER ORAL
     Route: 048
     Dates: start: 20070131
  2. SYNTHROID [Concomitant]
  3. SEASONIQUE (ALL OTHER THERAPEUTIC PRODUCTS) [Concomitant]
  4. BYETTA [Concomitant]
  5. LISINOPRIL [Concomitant]

REACTIONS (1)
  - INITIAL INSOMNIA [None]
